FAERS Safety Report 13910661 (Version 1)
Quarter: 2017Q3

REPORT INFORMATION
  Report Type: Spontaneous
  Country: US (occurrence: US)
  Receive Date: 20170826
  Receipt Date: 20170826
  Transmission Date: 20171127
  Serious: Yes (Other)
  Sender: FDA-Public Use
  Company Number: None

PATIENT
  Age: 80 Year
  Sex: Male
  Weight: 99 kg

DRUGS (3)
  1. ELIQUIS [Concomitant]
     Active Substance: APIXABAN
  2. TOVIAZ [Suspect]
     Active Substance: FESOTERODINE FUMARATE
     Indication: URINARY TRACT DISORDER
     Dosage: ?          QUANTITY:28 TABLET(S);?
     Route: 048
  3. TORAMINE [Concomitant]

REACTIONS (4)
  - Vision blurred [None]
  - Swelling face [None]
  - Lip oedema [None]
  - Lymphadenopathy [None]

NARRATIVE: CASE EVENT DATE: 20170821
